FAERS Safety Report 23482194 (Version 1)
Quarter: 2024Q1

REPORT INFORMATION
  Report Type: Spontaneous
  Country: CH (occurrence: CH)
  Receive Date: 20240205
  Receipt Date: 20240205
  Transmission Date: 20240409
  Serious: Yes (Other)
  Sender: FDA-Public Use
  Company Number: CH-PFM-2024-00459

PATIENT
  Age: 49 Year
  Sex: Female

DRUGS (4)
  1. ENCORAFENIB [Suspect]
     Active Substance: ENCORAFENIB
     Indication: Malignant melanoma
     Dosage: 450 MG, QD (1/DAY), (6.30 AM)
     Route: 065
  2. ENCORAFENIB [Suspect]
     Active Substance: ENCORAFENIB
     Dosage: UNK (HALF DSOE)
  3. BINIMETINIB [Suspect]
     Active Substance: BINIMETINIB
     Indication: Malignant melanoma
     Dosage: 45 MG, BID (2/DAY)  (6.30 AM AND 6.30 PM)
     Route: 065
  4. BINIMETINIB [Suspect]
     Active Substance: BINIMETINIB
     Dosage: UNK (HALF DOSE)

REACTIONS (2)
  - Serous retinal detachment [Not Recovered/Not Resolved]
  - Acute kidney injury [Unknown]
